FAERS Safety Report 18514155 (Version 1)
Quarter: 2020Q4

REPORT INFORMATION
  Report Type: Spontaneous
  Country: US (occurrence: US)
  Receive Date: 20201117
  Receipt Date: 20201117
  Transmission Date: 20210114
  Serious: No
  Sender: FDA-Public Use
  Company Number: US-NALPROPION PHARMACEUTICALS INC.-2020-010958

PATIENT
  Sex: Female

DRUGS (1)
  1. CONTRAVE [Suspect]
     Active Substance: BUPROPION HYDROCHLORIDE\NALTREXONE HYDROCHLORIDE
     Indication: WEIGHT CONTROL
     Dosage: 3 TABLETS
     Route: 048
     Dates: start: 20200824

REACTIONS (3)
  - Hunger [Not Recovered/Not Resolved]
  - Nausea [Recovered/Resolved]
  - Feeling of relaxation [Unknown]

NARRATIVE: CASE EVENT DATE: 20200824
